FAERS Safety Report 10362474 (Version 1)
Quarter: 2014Q1

REPORT INFORMATION
  Report Type: Spontaneous
  Country: US (occurrence: None)
  Receive Date: 20140306
  Receipt Date: 20140306
  Transmission Date: 20141002
  Serious: Yes (Other)
  Sender: FDA-Public Use
  Company Number: 163-21880-13061267

PATIENT
  Age: 70 Year
  Sex: Female
  Weight: 81.6 kg

DRUGS (7)
  1. REVLIMID (LENALIDOMIDE) (5 MILLIGRAM, CAPSULES) [Suspect]
     Indication: PLASMA CELL MYELOMA
     Route: 048
     Dates: start: 20120922
  2. VICODIN [Concomitant]
  3. WARFARIN [Concomitant]
  4. MORPHINE (UNKNOWN) [Concomitant]
  5. COLACE (DOCUSATE SODIUM) (UNKNOWN) [Concomitant]
  6. FERROUS GLUCONATE (UNKNOWN) [Concomitant]
  7. SIMVASTATIN (UNKNOWN) [Concomitant]

REACTIONS (1)
  - Arthritis [None]
